FAERS Safety Report 11982833 (Version 2)
Quarter: 2016Q2

REPORT INFORMATION
  Report Type: Report from Study
  Country: JP (occurrence: JP)
  Receive Date: 20160201
  Receipt Date: 20160623
  Transmission Date: 20160815
  Serious: Yes (Hospitalization, Other)
  Sender: FDA-Public Use
  Company Number: JP-JNJFOC-20131204249

PATIENT
  Age: 44 Year
  Sex: Male

DRUGS (24)
  1. MYSLEE [Concomitant]
     Active Substance: ZOLPIDEM TARTRATE
     Indication: INSOMNIA
     Dosage: PRN (AS NEEDED)
     Route: 048
     Dates: start: 20120903, end: 20121004
  2. EPZICOM [Concomitant]
     Active Substance: ABACAVIR SULFATE\LAMIVUDINE
     Indication: HIV INFECTION
     Dosage: DOSE: 60 TO 65 MG
     Route: 048
     Dates: start: 20140801
  3. MEPTIN [Concomitant]
     Active Substance: PROCATEROL HYDROCHLORIDE
     Indication: ASTHMA
     Route: 065
     Dates: start: 20120813, end: 20120813
  4. ALESION [Concomitant]
     Active Substance: EPINASTINE HYDROCHLORIDE
     Indication: ASTHMA
     Route: 048
     Dates: start: 20120813, end: 20120902
  5. FOSAMAC [Concomitant]
     Active Substance: ALENDRONATE SODIUM
     Indication: SPINAL COMPRESSION FRACTURE
     Route: 048
     Dates: start: 20140801, end: 20141128
  6. PREZISTA [Suspect]
     Active Substance: DARUNAVIR ETHANOLATE
     Indication: HIV INFECTION
     Route: 048
     Dates: start: 20120719, end: 20140731
  7. ZITHROMAC [Concomitant]
     Active Substance: AZITHROMYCIN DIHYDRATE
     Indication: OPPORTUNISTIC INFECTION PROPHYLAXIS
     Route: 048
     Dates: start: 20120628, end: 20130803
  8. SAMTIREL [Concomitant]
     Active Substance: ATOVAQUONE
     Indication: ANTIFUNGAL PROPHYLAXIS
     Route: 048
     Dates: start: 20120705, end: 20140807
  9. PREDONINE [Suspect]
     Active Substance: PREDNISOLONE\PREDNISOLONE ACETATE\PREDNISOLONE SODIUM SUCCINATE
     Indication: IMMUNE THROMBOCYTOPENIC PURPURA
     Dosage: DOSE: 60 TO 65 MG
     Route: 048
     Dates: start: 20140418, end: 20140807
  10. MEPTIN AIR [Concomitant]
     Active Substance: PROCATEROL HYDROCHLORIDE
     Indication: ASTHMA
     Route: 055
     Dates: start: 20130531, end: 20130613
  11. TIVICAY [Concomitant]
     Active Substance: DOLUTEGRAVIR SODIUM
     Indication: HIV INFECTION
     Dosage: DOSE: 60 TO 65 MG
     Route: 048
     Dates: start: 20140801
  12. POLYETHYLENE GLYCOL [Concomitant]
     Active Substance: POLYETHYLENE GLYCOLS
     Indication: IMMUNE THROMBOCYTOPENIC PURPURA
     Route: 042
     Dates: start: 20140701, end: 20140705
  13. LYRICA [Concomitant]
     Active Substance: PREGABALIN
     Indication: SPINAL COMPRESSION FRACTURE
     Route: 048
     Dates: start: 20140827, end: 20140923
  14. PREDONINE [Suspect]
     Active Substance: PREDNISOLONE\PREDNISOLONE ACETATE\PREDNISOLONE SODIUM SUCCINATE
     Indication: ASTHMA
     Route: 065
     Dates: start: 20130531, end: 20130602
  15. MEPTIN AIR [Concomitant]
     Active Substance: PROCATEROL HYDROCHLORIDE
     Indication: ASTHMA
     Dosage: PRN (AS NEEDED)
     Route: 055
     Dates: start: 20120813, end: 20120902
  16. TAKEPRON [Concomitant]
     Active Substance: LANSOPRAZOLE
     Indication: PROPHYLAXIS
     Route: 065
     Dates: start: 20140418, end: 20140807
  17. VENILON [Concomitant]
     Active Substance: HUMAN IMMUNOGLOBULIN G
     Indication: IMMUNE THROMBOCYTOPENIC PURPURA
     Route: 042
     Dates: start: 20140529, end: 20140602
  18. ALFAROL [Concomitant]
     Active Substance: ALFACALCIDOL
     Indication: SPINAL COMPRESSION FRACTURE
     Route: 048
     Dates: start: 20140725, end: 20141023
  19. NORVIR [Suspect]
     Active Substance: RITONAVIR
     Indication: HIV INFECTION
     Route: 048
     Dates: start: 20120719, end: 20140731
  20. TRUVADA [Suspect]
     Active Substance: EMTRICITABINE\TENOFOVIR DISOPROXIL FUMARATE
     Indication: HIV INFECTION
     Route: 048
     Dates: start: 20120719, end: 20140731
  21. FLAGYL [Concomitant]
     Active Substance: METRONIDAZOLE\METRONIDAZOLE HYDROCHLORIDE
     Indication: AMOEBIC DYSENTERY
     Route: 065
     Dates: start: 20120903, end: 20120912
  22. SILECE [Concomitant]
     Active Substance: FLUNITRAZEPAM
     Indication: INSOMNIA
     Route: 048
     Dates: start: 20121005, end: 20121208
  23. BARACLUDE [Concomitant]
     Active Substance: ENTECAVIR
     Indication: CHRONIC HEPATITIS B
     Route: 048
     Dates: start: 20140801
  24. TRAMAL [Concomitant]
     Active Substance: TRAMADOL
     Indication: SPINAL COMPRESSION FRACTURE
     Route: 065
     Dates: start: 20140730, end: 20140923

REACTIONS (4)
  - Spinal compression fracture [Recovering/Resolving]
  - Immune thrombocytopenic purpura [Recovered/Resolved]
  - Insomnia [Recovering/Resolving]
  - Asthma [Recovering/Resolving]

NARRATIVE: CASE EVENT DATE: 201207
